FAERS Safety Report 6417780-6 (Version None)
Quarter: 2009Q4

REPORT INFORMATION
  Report Type: 
  Country: None (occurrence: None)
  Receive Date: 20091027
  Receipt Date: 20091027
  Transmission Date: 20100525
  Serious: Yes (Hospitalization)
  Sender: FDA-Public Use
  Company Number: None

PATIENT
  Age: 39 Year
  Sex: Female

DRUGS (6)
  1. PHENYTOIN [Suspect]
     Indication: GRAND MAL CONVULSION
     Dosage: 100MG PO TID AT HOME
     Route: 048
  2. PHENYTOIN [Suspect]
     Dosage: 50 MG PO QAM
     Route: 048
  3. LEVETIRACETAM [Concomitant]
  4. GABAPENTIN [Concomitant]
  5. FOLIC ACID [Concomitant]
  6. OYSTER SHELL CALCIUM [Concomitant]

REACTIONS (4)
  - INCORRECT DOSE ADMINISTERED [None]
  - NEUROPATHY PERIPHERAL [None]
  - PARAESTHESIA [None]
  - TREMOR [None]
